FAERS Safety Report 11229208 (Version 1)
Quarter: 2015Q2

REPORT INFORMATION
  Report Type: Spontaneous
  Country: HR (occurrence: HR)
  Receive Date: 20150630
  Receipt Date: 20150630
  Transmission Date: 20150821
  Serious: Yes (Other)
  Sender: FDA-Public Use
  Company Number: HR-LUNDBECK-DKLU2000940

PATIENT
  Age: 5 Year

DRUGS (4)
  1. FRISIUM [Suspect]
     Active Substance: CLOBAZAM
     Route: 065
  2. FRISIUM [Suspect]
     Active Substance: CLOBAZAM
     Indication: EPILEPSY
     Route: 065
  3. FRISIUM [Suspect]
     Active Substance: CLOBAZAM
     Route: 065
  4. LAMOTRIGINE. [Concomitant]
     Active Substance: LAMOTRIGINE
     Indication: EPILEPSY
     Route: 065

REACTIONS (4)
  - Withdrawal syndrome [Unknown]
  - Crying [Unknown]
  - Intentional self-injury [Unknown]
  - Anger [Unknown]
